FAERS Safety Report 14856653 (Version 1)
Quarter: 2018Q2

REPORT INFORMATION
  Report Type: Spontaneous
  Country: US (occurrence: US)
  Receive Date: 20180507
  Receipt Date: 20180507
  Transmission Date: 20180711
  Serious: No
  Sender: FDA-Public Use
  Company Number: US-ROCHE-2010400

PATIENT
  Age: 65 Year
  Sex: Female
  Weight: 69.92 kg

DRUGS (8)
  1. ESBRIET [Suspect]
     Active Substance: PIRFENIDONE
     Route: 048
  2. AZELASTINE HCL [Concomitant]
     Active Substance: AZELASTINE HYDROCHLORIDE
  3. FLUCONAZOLE. [Concomitant]
     Active Substance: FLUCONAZOLE
  4. ESBRIET [Suspect]
     Active Substance: PIRFENIDONE
     Dosage: FOR 1 WEEK
     Route: 048
  5. BREO ELLIPTA [Concomitant]
     Active Substance: FLUTICASONE FUROATE\VILANTEROL TRIFENATATE
  6. OMEGA 3 [Concomitant]
     Active Substance: OMEGA-3 FATTY ACIDS
  7. SIMBICORT [Concomitant]
     Active Substance: BUDESONIDE\FORMOTEROL FUMARATE
  8. ESBRIET [Suspect]
     Active Substance: PIRFENIDONE
     Indication: IDIOPATHIC PULMONARY FIBROSIS
     Dosage: 1 WEEK
     Route: 048

REACTIONS (6)
  - Hypertension [Not Recovered/Not Resolved]
  - Blood glucose increased [Unknown]
  - Heart rate increased [Unknown]
  - Abdominal distension [Not Recovered/Not Resolved]
  - Dyspepsia [Not Recovered/Not Resolved]
  - Product use complaint [Unknown]

NARRATIVE: CASE EVENT DATE: 201711
